FAERS Safety Report 12328745 (Version 1)
Quarter: 2016Q2

REPORT INFORMATION
  Report Type: Spontaneous
  Country: US (occurrence: US)
  Receive Date: 20160503
  Receipt Date: 20160503
  Transmission Date: 20160815
  Serious: No
  Sender: FDA-Public Use
  Company Number: US-BEH-2015050508

PATIENT
  Sex: Female
  Weight: 57 kg

DRUGS (19)
  1. EPIPEN [Concomitant]
     Active Substance: EPINEPHRINE
     Indication: ANAPHYLACTIC REACTION
     Dosage: 0.3 MG IM AS NEEDED
     Route: 030
  2. FLOVENT HFA [Concomitant]
     Active Substance: FLUTICASONE PROPIONATE
     Dosage: 110 MCG INHALED AS DIRECTED
  3. MUPIROCIN OINTMENT [Concomitant]
     Active Substance: MUPIROCIN
     Dosage: 2% THREE TIMES DAILY AS DIRECTED
  4. CELEXA [Concomitant]
     Active Substance: CITALOPRAM HYDROBROMIDE
     Dosage: 20 MG BY MOUTH DAILY
  5. CHLOR-TRIMETON ALLERGY [Concomitant]
     Dosage: 1 TABLET BY MOUTH AS NEEDED
  6. VITAMIN B12 [Concomitant]
     Active Substance: CYANOCOBALAMIN
     Dosage: 200 MCG SUBLINGUAL BY MOUTH DAILY
  7. BENADRYL [Concomitant]
     Active Substance: DIPHENHYDRAMINE HYDROCHLORIDE
     Dosage: 25 MG BY MOUTH AS NEEDED
     Route: 048
  8. TUMS [Concomitant]
     Active Substance: CALCIUM CARBONATE
     Dosage: 500 MG CHEW 1 TABLET AS NEEDED
     Route: 048
  9. BACTROBAN [Concomitant]
     Active Substance: MUPIROCIN\MUPIROCIN CALCIUM
     Dosage: 2% APPLIED AS DIRECTED
  10. RITALIN [Concomitant]
     Active Substance: METHYLPHENIDATE HYDROCHLORIDE
     Dosage: 5 MG BY MOUTH AS NEEDED
  11. DIPHENHYDRAMINE. [Concomitant]
     Active Substance: DIPHENHYDRAMINE
     Dosage: 25 MG BY MOUTH AS DIRECTED
     Route: 048
  12. LIDOCAINE/PRILOCAINE [Concomitant]
     Dosage: 2.5% TOPICALLY PRIOR TO INFUSION
  13. SINGULAIR [Concomitant]
     Active Substance: MONTELUKAST SODIUM
     Dosage: 10 MG BY MOUTH AS DIRECTED
     Route: 048
  14. HIZENTRA [Suspect]
     Active Substance: HUMAN IMMUNOGLOBULIN G
     Indication: IMMUNODEFICIENCY COMMON VARIABLE
     Dosage: THERAPY START DATE, ??-???-2012
     Route: 058
  15. ALBUTEROL. [Concomitant]
     Active Substance: ALBUTEROL
     Dosage: 90 MCG INHALED AS DIRECTED
  16. GAS-X-SOFTGEL [Concomitant]
     Dosage: 166 MG BY MOUTH AS NEEDED
     Route: 048
  17. VITAMIN C [Concomitant]
     Active Substance: ASCORBIC ACID
     Dosage: 1000 MG BY MOUTH AS NEEDED
  18. MULTIVITAMIN [Concomitant]
     Active Substance: VITAMINS
     Dosage: 1 TABLET BY MOUTH AS DIRECTED
  19. ACETAMINOPHEN. [Concomitant]
     Active Substance: ACETAMINOPHEN
     Dosage: 325 MG BY MOUTH AS DIRECTED
     Route: 048

REACTIONS (2)
  - Fatigue [Recovering/Resolving]
  - Infusion site swelling [Recovering/Resolving]
